FAERS Safety Report 10067283 (Version 1)
Quarter: 2014Q2

REPORT INFORMATION
  Report Type: Spontaneous
  Country: US (occurrence: None)
  Receive Date: 20140408
  Receipt Date: 20140408
  Transmission Date: 20141212
  Serious: Yes (Other)
  Sender: FDA-Public Use
  Company Number: None

PATIENT
  Age: 61 Year
  Sex: Male
  Weight: 90.72 kg

DRUGS (1)
  1. METHYLPHENIDATE [Suspect]
     Indication: ATTENTION DEFICIT/HYPERACTIVITY DISORDER
     Dosage: 2 TABS ONCE DAILY TAKEN BY MOUTH
     Dates: start: 20140306, end: 20140406

REACTIONS (6)
  - Product substitution issue [None]
  - Product substitution issue [None]
  - Product quality issue [None]
  - Product formulation issue [None]
  - Drug effect decreased [None]
  - Product physical issue [None]
